FAERS Safety Report 4327559-7 (Version None)
Quarter: 2004Q1

REPORT INFORMATION
  Report Type: 
  Country: None (occurrence: None)
  Receive Date: 20040325
  Receipt Date: 20040312
  Transmission Date: 20041129
  Serious: Yes (Disabling, Other)
  Sender: FDA-Public Use
  Company Number: CN-SHR-04-022455

PATIENT
  Age: 38 Year
  Sex: Male

DRUGS (1)
  1. MAGNEVIST [Suspect]
     Indication: SPINAL MYELOGRAM
     Dosage: 15 ML,  1 DOSE, INTRATHECAL
     Route: 037
     Dates: start: 20040311, end: 20040311

REACTIONS (3)
  - COMA [None]
  - LIMB DISCOMFORT [None]
  - VOMITING [None]
